FAERS Safety Report 6312162-X (Version None)
Quarter: 2009Q3

REPORT INFORMATION
  Report Type: 
  Country: None (occurrence: None)
  Receive Date: 20090817
  Receipt Date: 20090807
  Transmission Date: 20100115
  Serious: Yes (Hospitalization)
  Sender: FDA-Public Use
  Company Number: US-AMGEN-QUU359191

PATIENT
  Sex: Female

DRUGS (3)
  1. ENBREL [Suspect]
     Indication: PSORIATIC ARTHROPATHY
     Route: 058
     Dates: start: 20030418
  2. METHOTREXATE [Concomitant]
  3. PLAQUENIL [Concomitant]
     Route: 048

REACTIONS (4)
  - DIABETES MELLITUS [None]
  - OEDEMA PERIPHERAL [None]
  - PSORIASIS [None]
  - PSORIATIC ARTHROPATHY [None]
